FAERS Safety Report 6079776-6 (Version None)
Quarter: 2009Q1

REPORT INFORMATION
  Report Type: 
  Country: None (occurrence: None)
  Receive Date: 20090217
  Receipt Date: 20090211
  Transmission Date: 20090719
  Serious: Yes (Hospitalization)
  Sender: FDA-Public Use
  Company Number: IT-ABBOTT-09P-083-0499613-00

PATIENT
  Sex: Male

DRUGS (2)
  1. FULCROSUPRA [Suspect]
     Indication: HYPERCHOLESTEROLAEMIA
     Route: 048
     Dates: start: 20080101, end: 20081204
  2. FULCROSUPRA [Suspect]

REACTIONS (1)
  - PANCREATITIS NECROTISING [None]
